FAERS Safety Report 4871652-7 (Version None)
Quarter: 2005Q4

REPORT INFORMATION
  Report Type: 
  Country: None (occurrence: None)
  Receive Date: 20051230
  Receipt Date: 20051219
  Transmission Date: 20060501
  Serious: Yes (Disabling)
  Sender: FDA-Public Use
  Company Number: 2005147411

PATIENT
  Age: 56 Year
  Sex: Female
  Weight: 50 kg

DRUGS (4)
  1. MINOXIDIL [Suspect]
     Indication: ALOPECIA
     Dosage: 2% TWICE DAILY, TOPICAL
     Route: 061
     Dates: start: 20050909, end: 20051016
  2. ORGANIC SILICIUM (ORGANIC SILICIUM) [Suspect]
     Indication: ALOPECIA
     Dosage: TID, ORAL
     Route: 048
     Dates: start: 20050909, end: 20051016
  3. MOXIFLOXACIN HCL [Concomitant]
  4. BETAMETHASONE [Concomitant]

REACTIONS (6)
  - CONJUNCTIVAL IRRITATION [None]
  - DRY EYE [None]
  - IRIDOCYCLITIS [None]
  - MYDRIASIS [None]
  - PARAESTHESIA [None]
  - PARAESTHESIA ORAL [None]
